FAERS Safety Report 16868316 (Version 1)
Quarter: 2019Q3

REPORT INFORMATION
  Report Type: Spontaneous
  Country: US (occurrence: US)
  Receive Date: 20190930
  Receipt Date: 20190930
  Transmission Date: 20191005
  Serious: No
  Sender: FDA-Public Use
  Company Number: US-PFIZER INC-2019415304

PATIENT
  Age: 61 Year

DRUGS (1)
  1. VIAGRA [Suspect]
     Active Substance: SILDENAFIL CITRATE
     Dosage: UNK

REACTIONS (4)
  - Hypoaesthesia [Unknown]
  - Injury [Unknown]
  - Pain [Unknown]
  - Nerve compression [Unknown]
